FAERS Safety Report 23240327 (Version 1)
Quarter: 2023Q4

REPORT INFORMATION
  Report Type: Spontaneous
  Country: US (occurrence: None)
  Receive Date: 20231128
  Receipt Date: 20231128
  Transmission Date: 20240110
  Serious: No
  Sender: FDA-Public Use
  Company Number: None

PATIENT
  Age: 70 Year
  Sex: Female
  Weight: 82.8 kg

DRUGS (3)
  1. MOLNUPIRAVIR [Suspect]
     Active Substance: MOLNUPIRAVIR
     Indication: COVID-19
     Dosage: OTHER QUANTITY : 4 CAPSULE(S);?FREQUENCY : EVERY 12 HOURS;?
     Route: 048
     Dates: start: 20231111, end: 20231116
  2. TYLENOL [Concomitant]
     Active Substance: ACETAMINOPHEN
  3. MODERNA COVID-19 VACCINE [Suspect]
     Active Substance: ELASOMERAN

REACTIONS (7)
  - Rash [None]
  - Rash [None]
  - Rash pruritic [None]
  - Rash erythematous [None]
  - Swollen tongue [None]
  - Mouth swelling [None]
  - Dizziness [None]

NARRATIVE: CASE EVENT DATE: 20231116
